FAERS Safety Report 7558469-X (Version None)
Quarter: 2011Q2

REPORT INFORMATION
  Report Type: 
  Country: None (occurrence: None)
  Receive Date: 20110620
  Receipt Date: 20110613
  Transmission Date: 20111010
  Serious: Yes (Death, Life-Threatening, Hospitalization, Disabling)
  Sender: FDA-Public Use
  Company Number: TW-AMGEN-TWNCT2011000074

PATIENT
  Age: 64 Year
  Sex: Female
  Weight: 46.2 kg

DRUGS (1)
  1. ETANERCEPT [Suspect]
     Indication: RHEUMATOID ARTHRITIS
     Dosage: 25 MG, 2 TIMES/WK
     Route: 058
     Dates: start: 20100723, end: 20101224

REACTIONS (6)
  - RENAL FAILURE ACUTE [None]
  - ACUTE RESPIRATORY FAILURE [None]
  - PNEUMONIA ASPIRATION [None]
  - PNEUMONIA [None]
  - PERIPHERAL ARTERIAL OCCLUSIVE DISEASE [None]
  - SEPTIC SHOCK [None]
